FAERS Safety Report 7332197-8 (Version None)
Quarter: 2011Q1

REPORT INFORMATION
  Report Type: 
  Country: None (occurrence: None)
  Receive Date: 20110304
  Receipt Date: 20110224
  Transmission Date: 20110831
  Serious: Yes (Hospitalization, Disabling, Other)
  Sender: FDA-Public Use
  Company Number: US-ROCHE-391972

PATIENT
  Sex: Female
  Weight: 59 kg

DRUGS (33)
  1. BENADRYL [Concomitant]
  2. LAC-HYDRIN [Concomitant]
     Dosage: DRUG REPORTED AS LAC-HYDRIN 12 % CR.
     Dates: start: 20000523
  3. RANITIDINE [Concomitant]
     Dates: start: 20000519
  4. ACCUTANE [Suspect]
     Route: 048
     Dates: start: 20001101
  5. NASACORT [Concomitant]
  6. CLEOCIN T [Concomitant]
     Dates: start: 20000523
  7. UNSPECIFIED DRUG [Concomitant]
     Dosage: REPORTED AS: CARBO-DM SYRUP.
     Dates: start: 19991020
  8. LEVAQUIN [Concomitant]
     Dates: start: 20010428
  9. ACCUTANE [Suspect]
     Dosage: STOP DATE REPORTED AS LATE 1999 OR EARLY 2000.
     Route: 048
     Dates: start: 19991001, end: 19991201
  10. ACCUTANE [Suspect]
     Dosage: STRENGTH REPORTED AS: 40MG.
     Route: 048
     Dates: start: 20010219, end: 20010401
  11. ZYRTEC [Concomitant]
  12. PENLAC [Concomitant]
     Route: 061
     Dates: start: 20001127
  13. CLOBETASOL PROPIONATE [Concomitant]
     Route: 061
     Dates: start: 20010319
  14. ACCUTANE [Suspect]
     Dosage: STOP DATE REPORTED AS SUMMER 1998.
     Route: 048
     Dates: start: 19980501, end: 19980701
  15. COMPAZINE [Concomitant]
  16. ORTHO TRI-CYCLEN [Concomitant]
  17. ADALAT [Concomitant]
  18. TRICOR [Concomitant]
     Dates: start: 20010428
  19. ACCUTANE [Suspect]
     Dosage: STOP DATE REPORTED AS EARLY 1997.
     Route: 048
     Dates: start: 19961101, end: 19970101
  20. ORTHO-NOVUM [Concomitant]
  21. ACCUTANE [Suspect]
     Dosage: STOP DATE REPORTED AS SUMMER 1999.
     Route: 048
     Dates: start: 19990301, end: 19990701
  22. HYDROQUINONE [Concomitant]
     Dosage: DRUG REPORTED AS HYDROQUINONE 4% CR WITH SUNSCREEN, LUSTRA-AF.
     Route: 061
     Dates: start: 20000519
  23. ZITHROMAX [Concomitant]
     Dates: start: 19990706
  24. AMOXIL [Concomitant]
     Dates: start: 20000211
  25. ACCUTANE [Suspect]
     Dosage: STOP DATE REPORTED AS EARLY 1996.
     Route: 048
     Dates: start: 19951201, end: 19960101
  26. ACCUTANE [Suspect]
     Dosage: STRENGTH REPORTED AS: 30MG.
     Route: 048
     Dates: start: 20000501
  27. NYSTATIN ORAL SUSPENSION [Concomitant]
     Dosage: STRENGTH REPORTED AS: 100,000U/ML.
     Route: 048
     Dates: start: 20010428
  28. ACCUTANE [Suspect]
     Route: 048
     Dates: start: 19940914, end: 19951201
  29. ACCUTANE [Suspect]
     Dosage: STRENGTH REPORTED AS: 20MG.
     Route: 048
     Dates: start: 20001201
  30. HERBAL EXTRACTS NOS [Concomitant]
     Dosage: DRUGS REPORTED AS UNSPECIFIED HERBAL MEDICINES.
  31. EMBELINE E [Concomitant]
     Dosage: DRUG REPORTED AS EMBELINE E 0.05% CR.
     Dates: start: 20001127
  32. DIPHENOXYLATE [Concomitant]
     Dosage: REPORTED AS: DIPHENOXYLATE/ATROPINE.
     Dates: start: 20001020
  33. PRANDIN [Concomitant]
     Dates: start: 20010428

REACTIONS (31)
  - PLEURAL EFFUSION [None]
  - HYPERGLYCAEMIA [None]
  - HYPERTENSIVE CRISIS [None]
  - INFLAMMATORY BOWEL DISEASE [None]
  - HEPATIC STEATOSIS [None]
  - HYPERTRIGLYCERIDAEMIA [None]
  - INSOMNIA [None]
  - DRY SKIN [None]
  - GASTROENTERITIS [None]
  - SPINAL DISORDER [None]
  - MUSCLE SPASMS [None]
  - TYPE 1 DIABETES MELLITUS [None]
  - HEPATITIS [None]
  - FATIGUE [None]
  - HEPATIC ENZYME INCREASED [None]
  - IRRITABLE BOWEL SYNDROME [None]
  - COLITIS [None]
  - ANAEMIA [None]
  - CELLULITIS [None]
  - CONSTIPATION [None]
  - ASCITES [None]
  - GASTROINTESTINAL PAIN [None]
  - GASTROOESOPHAGEAL REFLUX DISEASE [None]
  - PANCREATITIS [None]
  - DEPRESSION [None]
  - ABDOMINAL PAIN [None]
  - HYPERTENSION [None]
  - ACNE [None]
  - INTERVERTEBRAL DISC DEGENERATION [None]
  - ROAD TRAFFIC ACCIDENT [None]
  - RASH [None]
